FAERS Safety Report 13950476 (Version 1)
Quarter: 2017Q3

REPORT INFORMATION
  Report Type: Spontaneous
  Country: CN (occurrence: CN)
  Receive Date: 20170908
  Receipt Date: 20170908
  Transmission Date: 20171128
  Serious: Yes (Hospitalization)
  Sender: FDA-Public Use
  Company Number: CN-009507513-1709CHN003411

PATIENT
  Age: 85 Year
  Sex: Female

DRUGS (2)
  1. ALPRAZOLAM. [Concomitant]
     Active Substance: ALPRAZOLAM
     Indication: SLEEP DISORDER
     Dosage: 0.4 MG, QD
     Route: 048
     Dates: start: 20170203, end: 20170620
  2. ZOCOR [Suspect]
     Active Substance: SIMVASTATIN
     Indication: LIPIDS ABNORMAL
     Dosage: 20 MG, QD
     Route: 048
     Dates: start: 20170203, end: 20170619

REACTIONS (1)
  - Myocardial necrosis marker increased [Recovering/Resolving]

NARRATIVE: CASE EVENT DATE: 20170614
